FAERS Safety Report 7725222-3 (Version None)
Quarter: 2011Q3

REPORT INFORMATION
  Report Type: 
  Country: None (occurrence: None)
  Receive Date: 20110901
  Receipt Date: 20110824
  Transmission Date: 20111222
  Serious: Yes (Death)
  Sender: FDA-Public Use
  Company Number: JP-GENENTECH-323165

PATIENT
  Sex: Male

DRUGS (14)
  1. RITUXIMAB [Suspect]
     Indication: MANTLE CELL LYMPHOMA
     Dosage: 645 MG, UNK
     Route: 042
     Dates: start: 20110228, end: 20110721
  2. BENDAMUSTINE [Suspect]
     Dosage: 116 MG, UNK
     Route: 042
     Dates: start: 20110302, end: 20110722
  3. CEFDITOREN PIVOXIL [Concomitant]
     Indication: INFECTION
     Dosage: 200 MG, QD
     Route: 048
     Dates: start: 20110406, end: 20110415
  4. GRANISETRON [Concomitant]
     Indication: ANTIEMETIC SUPPORTIVE CARE
     Dosage: 3 MG, QD
     Route: 042
     Dates: start: 20110301, end: 20110722
  5. WARFARIN SODIUM [Concomitant]
     Indication: MYOCARDIAL INFARCTION
     Dosage: 0.5 MG, UNKNOWN
     Route: 048
     Dates: start: 20110301, end: 20110311
  6. ALLOPURINOL [Concomitant]
     Indication: HYPERURICAEMIA
     Dosage: 200 MG, QD
     Route: 048
     Dates: start: 20110301, end: 20110803
  7. CEFTRIAXONE SODIUM [Concomitant]
     Indication: INFECTION
     Dosage: 1 G, QD
     Route: 042
     Dates: start: 20110405, end: 20110407
  8. IMMUNE GLOBULIN INTRAVENOUS (HUMAN) [Concomitant]
     Indication: INFECTION
     Dosage: 2.5 G, QD
     Route: 042
     Dates: start: 20110405, end: 20110725
  9. LENDORMIN [Concomitant]
     Indication: INSOMNIA
     Dosage: 0.25 MG, QD
     Route: 048
     Dates: start: 20110301, end: 20110803
  10. BENDAMUSTINE [Suspect]
     Indication: MANTLE CELL LYMPHOMA
     Dosage: 77 MG, UNK
     Route: 065
     Dates: start: 20110301, end: 20110721
  11. RABEPRAZOLE SODIUM [Concomitant]
     Indication: GASTROOESOPHAGEAL REFLUX DISEASE
     Dosage: 10 MG, QD
     Route: 048
     Dates: start: 20110311, end: 20110803
  12. SULFAMETHOXAZOLE [Concomitant]
     Indication: INFECTION PROPHYLAXIS
     Dosage: UNK
     Dates: start: 20110401, end: 20110726
  13. PYRINAZIN [Concomitant]
     Indication: INFECTION
     Dosage: 4 G, QD
     Route: 048
     Dates: start: 20110406, end: 20110412
  14. DECADRON [Concomitant]
     Indication: ANTIEMETIC SUPPORTIVE CARE
     Dosage: 8 MG, QD
     Route: 042
     Dates: start: 20110301, end: 20110722

REACTIONS (2)
  - INTERSTITIAL LUNG DISEASE [None]
  - LIVER DISORDER [None]
